FAERS Safety Report 16041659 (Version 1)
Quarter: 2019Q1

REPORT INFORMATION
  Report Type: Spontaneous
  Country: US (occurrence: US)
  Receive Date: 20190306
  Receipt Date: 20190306
  Transmission Date: 20190418
  Serious: No
  Sender: FDA-Public Use
  Company Number: US-PFIZER INC-2019087208

PATIENT
  Sex: Male

DRUGS (2)
  1. ADVIL [Suspect]
     Active Substance: IBUPROFEN
     Dosage: 2 DF, UNK, [TOOK 2 TABLETS]
  2. ADVIL [Suspect]
     Active Substance: IBUPROFEN
     Dosage: 1 DF, UNK, [TOOK ONE TABLET ]

REACTIONS (1)
  - Drug ineffective [Unknown]
